FAERS Safety Report 6474463-4 (Version None)
Quarter: 2009Q4

REPORT INFORMATION
  Report Type: 
  Country: None (occurrence: None)
  Receive Date: 20091204
  Receipt Date: 20091123
  Transmission Date: 20100525
  Serious: Yes (Death, Hospitalization)
  Sender: FDA-Public Use
  Company Number: US-PFIZER INC-2009265894

PATIENT
  Sex: Female

DRUGS (36)
  1. IRINOTECAN HCL [Suspect]
     Indication: GLIOBLASTOMA
     Dosage: 200 MG, 1 WEEK
     Route: 042
     Dates: start: 20090818, end: 20090818
  2. AVASTIN [Suspect]
     Indication: GLIOBLASTOMA
     Dosage: 600 MG, 1 WEEK
     Route: 042
     Dates: start: 20090818, end: 20090818
  3. CT-322 [Suspect]
     Indication: GLIOBLASTOMA MULTIFORME
     Dosage: 32 MG, 1 DAY
     Route: 042
     Dates: start: 20090225, end: 20090804
  4. TEMOZOLOMIDE [Suspect]
     Indication: GLIOBLASTOMA MULTIFORME
     Dosage: 1 DF, 1 DAY
     Route: 048
     Dates: start: 20090225, end: 20090801
  5. RADIATION THERAPY [Suspect]
     Indication: GLIOBLASTOMA MULTIFORME
     Dosage: 1 DF, 1 DAY
     Dates: start: 20090225, end: 20090407
  6. PAXIL [Concomitant]
  7. LOTREL [Concomitant]
  8. KEPPRA [Concomitant]
     Dosage: UNK
     Dates: start: 20090101
  9. POTASSIUM CHLORIDE [Concomitant]
     Dosage: UNK
     Dates: start: 20090128
  10. CALCIUM WITH VITAMIN D [Concomitant]
     Dosage: UNK
     Dates: start: 20090128
  11. MULTIPLE VITAMINS [Concomitant]
  12. PRILOSEC [Concomitant]
     Dosage: UNK
     Dates: start: 20090128
  13. BACTRIM [Concomitant]
     Dosage: UNK
     Dates: start: 20090225
  14. DECADRON [Concomitant]
     Dosage: UNK
     Dates: start: 20090123, end: 20090225
  15. FIBERCON [Concomitant]
     Dosage: UNK
     Dates: start: 20070302, end: 20070307
  16. IBUPROFEN [Concomitant]
     Dosage: UNK
     Dates: start: 20090301
  17. AMLODIPINE [Concomitant]
     Dosage: UNK
     Dates: start: 20090101, end: 20090303
  18. BENAZEPRIL HYDROCHLORIDE [Concomitant]
     Dosage: UNK
     Dates: start: 20090101, end: 20090303
  19. CLONIDINE [Concomitant]
     Dosage: UNK
     Dates: start: 20090101, end: 20090303
  20. HYDROCHLOROTHIAZIDE [Concomitant]
     Dosage: UNK
     Dates: start: 20090129, end: 20090201
  21. ENALAPRIL GENERICS [Concomitant]
     Dosage: UNK
     Dates: start: 20090101, end: 20090303
  22. ZOSYN [Concomitant]
     Dosage: UNK
     Dates: start: 20090123, end: 20090131
  23. HEPARIN [Concomitant]
     Dosage: UNK
     Dates: start: 20090123, end: 20090131
  24. INSULIN [Concomitant]
     Dosage: UNK
     Dates: start: 20090101, end: 20090303
  25. LISINOPRIL [Concomitant]
     Dosage: UNK
     Dates: start: 20090201, end: 20090301
  26. PROTONIX [Concomitant]
     Dosage: UNK
     Dates: start: 20080101, end: 20090127
  27. CORTISONE [Concomitant]
     Dosage: UNK
     Dates: start: 20090415, end: 20090415
  28. VITAMIN PREPARATION COMPOUND [Concomitant]
     Dosage: UNK
     Dates: start: 20080101
  29. TYLENOL (CAPLET) [Concomitant]
     Dosage: UNK
     Dates: start: 20090101
  30. ZOFRAN [Concomitant]
     Dosage: UNK
     Dates: start: 20090225
  31. CIPRO [Concomitant]
     Dosage: UNK
     Dates: start: 20090617, end: 20090618
  32. IMODIUM [Concomitant]
     Dosage: UNK
     Dates: start: 20090825
  33. LOMOTIL [Concomitant]
     Dosage: UNK
     Dates: start: 20090826
  34. ALOXI [Concomitant]
     Dosage: UNK
     Dates: start: 20090818, end: 20090818
  35. ATROPINE [Concomitant]
     Dosage: UNK
     Dates: start: 20090818, end: 20090818
  36. DEXAMETHASONE [Concomitant]
     Dosage: UNK
     Dates: start: 20090806

REACTIONS (7)
  - ASTHENIA [None]
  - BRAIN NEOPLASM [None]
  - DEHYDRATION [None]
  - MALIGNANT NEOPLASM PROGRESSION [None]
  - NEUTROPENIA [None]
  - PANCYTOPENIA [None]
  - THROMBOCYTOPENIA [None]
